FAERS Safety Report 8790417 (Version 1)
Quarter: 2012Q4

REPORT INFORMATION
  Report Type: Spontaneous
  Country: US (occurrence: None)
  Receive Date: 20120911
  Receipt Date: 20120911
  Transmission Date: 20130627
  Serious: Yes (Other)
  Sender: FDA-Public Use
  Company Number: None

PATIENT
  Age: 60 Year
  Sex: Female
  Weight: 95.26 kg

DRUGS (1)
  1. ENOXAPARIN SODIUM [Suspect]
     Indication: THERAPEUTIC PROCEDURE
     Dosage: inject contents of 1 syringe
     Dates: start: 20120825, end: 20120905

REACTIONS (5)
  - Injection site haemorrhage [None]
  - Injection site pain [None]
  - Injection site swelling [None]
  - Product quality issue [None]
  - Product substitution issue [None]
